FAERS Safety Report 7919991-7 (Version None)
Quarter: 2011Q4

REPORT INFORMATION
  Report Type: 
  Country: None (occurrence: None)
  Receive Date: 20111117
  Receipt Date: 20111109
  Transmission Date: 20120403
  Serious: Yes (Other)
  Sender: FDA-Public Use
  Company Number: US-AMGEN-USASP2011056470

PATIENT
  Age: 82 Year
  Sex: Female
  Weight: 94.785 kg

DRUGS (2)
  1. PROCRIT [Suspect]
     Indication: NEPHROGENIC ANAEMIA
     Dosage: 60000 IU, Q2WK
     Route: 058
     Dates: start: 20070501, end: 20111018
  2. ALLOPURINOL [Concomitant]
     Dosage: UNK

REACTIONS (3)
  - THERAPEUTIC RESPONSE DECREASED [None]
  - APLASIA PURE RED CELL [None]
  - HYPERPARATHYROIDISM SECONDARY [None]
